FAERS Safety Report 14581943 (Version 2)
Quarter: 2018Q1

REPORT INFORMATION
  Report Type: Spontaneous
  Country: US (occurrence: US)
  Receive Date: 20180228
  Receipt Date: 20180321
  Transmission Date: 20180509
  Serious: Yes (Hospitalization)
  Sender: FDA-Public Use
  Company Number: US-009507513-1802USA013203

PATIENT
  Age: 76 Year
  Sex: Female

DRUGS (5)
  1. CUBICIN [Suspect]
     Active Substance: DAPTOMYCIN
     Indication: PYELONEPHRITIS
     Dosage: UNK
     Route: 042
     Dates: start: 20171227, end: 201802
  2. SYNTHROID [Concomitant]
     Active Substance: LEVOTHYROXINE SODIUM
  3. INVANZ [Suspect]
     Active Substance: ERTAPENEM SODIUM
     Dosage: UNK
     Route: 042
     Dates: start: 20171227, end: 201802
  4. KEFLEX [Concomitant]
     Active Substance: CEPHALEXIN
     Indication: PYELONEPHRITIS
     Dosage: UNK
     Dates: start: 20171227
  5. TRESIBA [Concomitant]
     Active Substance: INSULIN DEGLUDEC

REACTIONS (7)
  - Asthenia [Unknown]
  - Myalgia [Recovered/Resolved]
  - Pain [Not Recovered/Not Resolved]
  - Somnolence [Unknown]
  - Drug dose omission [Unknown]
  - Myalgia [Unknown]
  - Pyrexia [Recovered/Resolved]

NARRATIVE: CASE EVENT DATE: 2018
